FAERS Safety Report 6852207-1 (Version None)
Quarter: 2010Q3

REPORT INFORMATION
  Report Type: 
  Country: None (occurrence: None)
  Receive Date: 20100717
  Receipt Date: 20080116
  Transmission Date: 20110219
  Serious: No
  Sender: FDA-Public Use
  Company Number: US-PFIZER INC-2007094959

PATIENT
  Sex: Male
  Weight: 100 kg

DRUGS (10)
  1. CHANTIX [Suspect]
     Indication: SMOKING CESSATION THERAPY
     Dates: start: 20070701
  2. CHANTIX [Suspect]
     Indication: TOBACCO ABUSE
  3. METFORMIN HCL [Concomitant]
  4. ACYCLOVIR [Concomitant]
  5. FLEXERIL [Concomitant]
  6. DICLOFENAC [Concomitant]
  7. SIMVASTATIN [Concomitant]
  8. METOPROLOL [Concomitant]
  9. TERAZOSIN HCL [Concomitant]
  10. ALLOPURINOL [Concomitant]

REACTIONS (1)
  - DRUG INEFFECTIVE [None]
